FAERS Safety Report 10061280 (Version 4)
Quarter: 2015Q2

REPORT INFORMATION
  Report Type: Spontaneous
  Country: DK (occurrence: DK)
  Receive Date: 20140407
  Receipt Date: 20150515
  Transmission Date: 20150821
  Serious: Yes (Hospitalization)
  Sender: FDA-Public Use
  Company Number: DK-MERCK-1404DNK000039

PATIENT
  Age: 82 Year
  Sex: Male

DRUGS (18)
  1. PERILAX [Concomitant]
     Indication: CONSTIPATION
     Dosage: 10 MG ONCE DAILY
  2. GABAPENTIN. [Concomitant]
     Active Substance: GABAPENTIN
     Indication: PAIN
     Dosage: UNK
     Route: 048
  3. IMOCLONE [Concomitant]
     Active Substance: ZOPICLONE
     Indication: PRODUCT USED FOR UNKNOWN INDICATION
     Dosage: WHEN NEEDED MAX 1 EVERY DAY
     Route: 048
  4. SIMVASTATIN ACTAVIS [Concomitant]
     Active Substance: SIMVASTATIN
     Indication: HYPERCHOLESTEROLAEMIA
     Dosage: 20 MG ONCE DAILY
     Route: 048
  5. OXAPAX [Concomitant]
     Active Substance: OXAZEPAM
     Indication: PRODUCT USED FOR UNKNOWN INDICATION
     Dosage: WHEN NEEDED MAX 1 EVERY DAY
     Route: 048
  6. OXYNORM [Concomitant]
     Active Substance: OXYCODONE HYDROCHLORIDE
     Indication: PAIN
     Dosage: WHEN NEEDED MAX 6 TIMES
  7. MAREVAN [Suspect]
     Active Substance: WARFARIN SODIUM
     Indication: CARDIAC FIBRILLATION
  8. CHLORZOXAZONE. [Concomitant]
     Active Substance: CHLORZOXAZONE
     Indication: MUSCLE RELAXANT THERAPY
     Dosage: UNK, TID
     Route: 048
  9. VITAMINS (UNSPECIFIED) [Concomitant]
     Active Substance: VITAMINS
     Indication: VITAMIN SUPPLEMENTATION
     Dosage: 1 FIXED DAILY DOSE
  10. MAREVAN [Suspect]
     Active Substance: WARFARIN SODIUM
     Indication: THROMBOSIS
  11. CATAPRESAN [Concomitant]
     Active Substance: CLONIDINE
     Indication: MIGRAINE
     Dosage: 1+1+0+2
     Route: 048
  12. IMDUR [Concomitant]
     Active Substance: ISOSORBIDE MONONITRATE
     Indication: ANGINA PECTORIS
     Dosage: 30+45+0+0 MG
     Route: 048
  13. IVERMECTIN. [Suspect]
     Active Substance: IVERMECTIN
     Indication: ACARODERMATITIS
     Dosage: UNK
     Route: 048
     Dates: start: 20140210, end: 20140219
  14. DIGOXIN. [Concomitant]
     Active Substance: DIGOXIN
     Indication: ATRIAL FIBRILLATION
     Dosage: UNK, QD
     Route: 048
  15. NIX [Concomitant]
     Active Substance: PERMETHRIN
     Indication: ACARODERMATITIS
     Dosage: UNK
     Route: 003
     Dates: start: 20140210, end: 20140219
  16. MAREVAN [Suspect]
     Active Substance: WARFARIN SODIUM
     Indication: ATRIAL FIBRILLATION
     Dosage: 1 TABLET FRIDAY, OTHERWISE 2 TABLETS EVERY DAY
     Route: 048
     Dates: end: 20140219
  17. METADON [Concomitant]
     Active Substance: METHADONE HYDROCHLORIDE
     Indication: PRODUCT USED FOR UNKNOWN INDICATION
  18. MOVICOL [Concomitant]
     Active Substance: POLYETHYLENE GLYCOL 3350\POTASSIUM CHLORIDE\SODIUM BICARBONATE\SODIUM CHLORIDE
     Indication: CONSTIPATION
     Dosage: 1 DOSAGE BAG TWICE A DAY
     Route: 048

REACTIONS (2)
  - Jaundice [Recovering/Resolving]
  - Hepatic enzyme increased [Recovered/Resolved]

NARRATIVE: CASE EVENT DATE: 201402
